FAERS Safety Report 8417444-3 (Version None)
Quarter: 2012Q2

REPORT INFORMATION
  Report Type: 
  Country: None (occurrence: None)
  Receive Date: 20120606
  Receipt Date: 20110126
  Transmission Date: 20120825
  Serious: Yes (Other)
  Sender: FDA-Public Use
  Company Number: PHHY2011IR116650

PATIENT
  Age: 48 Year
  Sex: Male

DRUGS (6)
  1. METHYLPREDNISOLONE [Suspect]
     Indication: FAT EMBOLISM
     Dosage: 500 MG, OVER 2 HOURS: SECOND DOSE
     Route: 042
  2. METHYLPREDNISOLONE [Suspect]
     Indication: PROPHYLAXIS
     Dosage: 500 MG, OVER 2 HOURS; OVER 6 HOURS
     Route: 042
  3. ENOXAPARIN SODIUM [Concomitant]
  4. CEFAZOLIN [Concomitant]
  5. GENTAMICIN [Concomitant]
  6. RANITIDINE [Concomitant]

REACTIONS (2)
  - ATRIAL FIBRILLATION [None]
  - SINUS TACHYCARDIA [None]
